FAERS Safety Report 21699204 (Version 7)
Quarter: 2023Q2

REPORT INFORMATION
  Report Type: Report from Study
  Country: US (occurrence: US)
  Receive Date: 20221208
  Receipt Date: 20230616
  Transmission Date: 20230722
  Serious: No
  Sender: FDA-Public Use
  Company Number: US-002147023-NVSC2022US284206

PATIENT
  Age: 62 Year
  Sex: Female

DRUGS (1)
  1. COSENTYX [Suspect]
     Active Substance: SECUKINUMAB
     Indication: Psoriasis
     Dosage: UNK
     Route: 065
     Dates: start: 202209

REACTIONS (4)
  - COVID-19 [Unknown]
  - Pruritus [Unknown]
  - Pain of skin [Unknown]
  - Arthritis [Unknown]

NARRATIVE: CASE EVENT DATE: 20220901
